FAERS Safety Report 8924605 (Version 2)
Quarter: 2013Q1

REPORT INFORMATION
  Report Type: Spontaneous
  Country: US (occurrence: US)
  Receive Date: 20121126
  Receipt Date: 20130109
  Transmission Date: 20140127
  Serious: Yes (Other)
  Sender: FDA-Public Use
  Company Number: US-PFIZER INC-2012291468

PATIENT
  Age: 52 Year
  Sex: Female

DRUGS (11)
  1. NEURONTIN [Suspect]
     Dosage: 300 MG, 2X/DAY
  2. CRESTOR [Concomitant]
     Dosage: 20 MG, 1X/DAY (TAKE 1 TABLET)
     Route: 048
  3. ASPIRIN [Concomitant]
     Dosage: 81 MG, 1X/DAY (TAKE 1 TABLET)
     Route: 048
  4. REGLAN [Concomitant]
     Dosage: 10 MG, 4X/DAY (30 MINUTES BEFORE MEALS AND AT BEDTIME)
     Route: 048
  5. VENTOLIN [Concomitant]
     Dosage: 90 UG, AS NEEDED (INHALE 2 PUFF EVERY 4-6 HOURS)
  6. GLIPIZIDE [Concomitant]
     Dosage: 20 MG, 2X/DAY (10 MG TAB, TAKE 2 TABLETS 2 TIMES EVERY DAY BEFORE A MEAL)
     Route: 048
  7. SPIRIVA [Concomitant]
     Dosage: 18 UG, 1X/DAY (INHALE 1 CAPSULE)
  8. HUMALOG [Concomitant]
     Dosage: (75-25 SUSP, 100UNIT/ML, 25 UNITS BID)
     Route: 058
  9. ALPRAZOLAM [Concomitant]
     Dosage: 0.25 MG, (1 PO IN AM)
     Route: 048
  10. CITALOPRAM [Concomitant]
     Dosage: 10 MG, 1X/DAY (20 MG TABLET, TAKE 0.5 TABLET)
     Route: 048
  11. CARVEDILOL [Concomitant]
     Dosage: 6.25 MG, 2X/DAY (12.5 MG TABLET, TAKE 0.5 TABLET 2 TIMES EVERYDAY WITH FOOD)
     Route: 048

REACTIONS (1)
  - Diabetes mellitus [Unknown]
